FAERS Safety Report 11440239 (Version 1)
Quarter: 2015Q3

REPORT INFORMATION
  Report Type: Spontaneous
  Country: US (occurrence: None)
  Receive Date: 20150831
  Receipt Date: 20150831
  Transmission Date: 20151125
  Serious: No
  Sender: FDA-Public Use
  Company Number: None

PATIENT
  Age: 18 Month
  Sex: Male
  Weight: 12.25 kg

DRUGS (1)
  1. MOXEZA [Suspect]
     Active Substance: MOXIFLOXACIN HYDROCHLORIDE
     Indication: CONJUNCTIVITIS
     Route: 047
     Dates: start: 20150828, end: 20150828

REACTIONS (1)
  - Rash [None]

NARRATIVE: CASE EVENT DATE: 20150827
